FAERS Safety Report 7552441-1 (Version None)
Quarter: 2011Q2

REPORT INFORMATION
  Report Type: 
  Country: None (occurrence: None)
  Receive Date: 20110616
  Receipt Date: 20110613
  Transmission Date: 20111010
  Serious: Yes (Death)
  Sender: FDA-Public Use
  Company Number: US-ACTELION-A-US2011-50086

PATIENT

DRUGS (3)
  1. LETAIRIS [Concomitant]
  2. EPOPROSTENOL SODIUM [Suspect]
     Indication: PULMONARY ARTERIAL HYPERTENSION
     Dosage: 8 NG/KG, PER MIN
     Route: 042
     Dates: start: 20110216, end: 20110601
  3. HEPARIN LOCK-FLUSH [Concomitant]

REACTIONS (3)
  - RENAL FAILURE [None]
  - PULMONARY HYPERTENSION [None]
  - CHRONIC HEPATIC FAILURE [None]
